FAERS Safety Report 5241292-9 (Version None)
Quarter: 2007Q1

REPORT INFORMATION
  Report Type: 
  Country: None (occurrence: None)
  Receive Date: 20070220
  Receipt Date: 20070215
  Transmission Date: 20070707
  Serious: Yes (Hospitalization)
  Sender: FDA-Public Use
  Company Number: AU-JNJFOC-20070202533

PATIENT
  Sex: Female

DRUGS (2)
  1. SPORANOX [Suspect]
     Indication: VAGINAL CANDIDIASIS
     Route: 048
  2. MINOXIDIL [Concomitant]
     Indication: ALOPECIA
     Route: 061

REACTIONS (1)
  - OPTIC NEURITIS [None]
